FAERS Safety Report 9023966 (Version 2)
Quarter: 2014Q2

REPORT INFORMATION
  Report Type: Report from Study
  Country: BR (occurrence: BR)
  Receive Date: 20130121
  Receipt Date: 20140603
  Transmission Date: 20141212
  Serious: Yes (Death)
  Sender: FDA-Public Use
  Company Number: BR-INCYTE CORPORATION-2013IN000074

PATIENT
  Age: 60 Year
  Sex: Male
  Weight: 40.18 kg

DRUGS (4)
  1. INC424 [Suspect]
     Indication: MYELOFIBROSIS
     Dosage: 20 MG, BID
     Route: 048
     Dates: start: 20111125
  2. DEFERASIROX [Concomitant]
     Indication: HAEMOCHROMATOSIS
     Dosage: 2 G, QD
     Route: 048
     Dates: start: 2008, end: 20121230
  3. OMEPRAZOLE [Concomitant]
     Indication: GASTRITIS PROPHYLAXIS
     Dosage: 20 MG, QD
     Route: 048
     Dates: start: 2002, end: 20121230
  4. ROHYPNOL [Concomitant]
     Dosage: UNK
     Route: 048
     Dates: start: 2002, end: 20121230

REACTIONS (1)
  - Cardiac failure [Fatal]
